FAERS Safety Report 15884794 (Version 4)
Quarter: 2019Q2

REPORT INFORMATION
  Report Type: Spontaneous
  Country: US (occurrence: US)
  Receive Date: 20190129
  Receipt Date: 20190415
  Transmission Date: 20190711
  Serious: Yes (Other)
  Sender: FDA-Public Use
  Company Number: US-PFIZER INC-2019031316

PATIENT
  Age: 80 Year
  Sex: Female
  Weight: 74.83 kg

DRUGS (7)
  1. XALATAN [Suspect]
     Active Substance: LATANOPROST
     Indication: INTRAOCULAR PRESSURE INCREASED
     Dosage: UNK
     Route: 047
  2. VITAMIN B12 [COBAMAMIDE] [Concomitant]
     Dosage: 500 UG, 1X/DAY
     Route: 048
  3. XALATAN [Suspect]
     Active Substance: LATANOPROST
     Dosage: UNK
  4. VITAMIN D3 [Concomitant]
     Active Substance: CHOLECALCIFEROL
     Dosage: 1000 IU, DAILY[2 ON SATURDAY^S]
     Route: 048
  5. VITAMIN D3 [Concomitant]
     Active Substance: CHOLECALCIFEROL
     Dosage: 1000 IU, UNK [EVERY DAY ]
     Route: 048
  6. XALATAN [Suspect]
     Active Substance: LATANOPROST
     Indication: GLAUCOMA
     Dosage: 1 GTT, UNK [ONE DROP IN HER LEFT EYE]
     Route: 047
  7. SYNTHROID [Concomitant]
     Active Substance: LEVOTHYROXINE SODIUM
     Indication: THYROID DISORDER
     Dosage: 25 UG, 1X/DAY (ONCE EVERY MORNING)
     Route: 048

REACTIONS (3)
  - Drug ineffective [Unknown]
  - Herpes ophthalmic [Unknown]
  - Visual field defect [Unknown]

NARRATIVE: CASE EVENT DATE: 2016
